FAERS Safety Report 21392557 (Version 2)
Quarter: 2022Q4

REPORT INFORMATION
  Report Type: Report from Study
  Country: US (occurrence: US)
  Receive Date: 20220929
  Receipt Date: 20221014
  Transmission Date: 20230113
  Serious: Yes (Other)
  Sender: FDA-Public Use
  Company Number: US-TEVA-2022-US-2076349

PATIENT

DRUGS (4)
  1. FLUDARABINE [Suspect]
     Active Substance: FLUDARABINE PHOSPHATE
     Indication: Myeloid leukaemia
     Dosage: ON DAYS 6 TO 10
     Route: 065
  2. DECITABINE [Suspect]
     Active Substance: DECITABINE
     Indication: Myeloid leukaemia
     Route: 065
  3. VORINOSTAT [Suspect]
     Active Substance: VORINOSTAT
     Indication: Myeloid leukaemia
     Route: 065
  4. CYTARABINE [Suspect]
     Active Substance: CYTARABINE
     Indication: Myeloid leukaemia
     Dosage: ON DAYS 6 TO 10
     Route: 065

REACTIONS (1)
  - Haematotoxicity [Unknown]
